FAERS Safety Report 7008771-5 (Version None)
Quarter: 2010Q3

REPORT INFORMATION
  Report Type: 
  Country: None (occurrence: None)
  Receive Date: 20100921
  Receipt Date: 20100903
  Transmission Date: 20110219
  Serious: Yes (Other)
  Sender: FDA-Public Use
  Company Number: GB-ACCORD-003986

PATIENT
  Age: 15 Year

DRUGS (6)
  1. MYCOPHENOLATE MOFETIL [Suspect]
     Indication: IMMUNOSUPPRESSION
  2. PREDNISOLONE [Suspect]
     Indication: IMMUNOSUPPRESSION
  3. TACROLIMUS [Suspect]
  4. IMMUNOGLOBULIN  G HUMAN(IMMUNOGLOBULIN G HUMAN) [Suspect]
     Indication: PRODUCT USED FOR UNKNOWN INDICATION
  5. ATG(ATG) [Suspect]
     Indication: KIDNEY TRANSPLANT REJECTION
  6. BASILIXIMAB(BASILIXIMAB) [Suspect]
     Indication: IMMUNOSUPPRESSION

REACTIONS (6)
  - ANAEMIA [None]
  - BONE MARROW FAILURE [None]
  - DISEASE RECURRENCE [None]
  - ERYTHEMA INFECTIOSUM [None]
  - KIDNEY TRANSPLANT REJECTION [None]
  - PULMONARY OEDEMA [None]
